FAERS Safety Report 10881528 (Version 2)
Quarter: 2015Q2

REPORT INFORMATION
  Report Type: Spontaneous
  Country: JP (occurrence: JP)
  Receive Date: 20150303
  Receipt Date: 20150420
  Transmission Date: 20150821
  Serious: Yes (Hospitalization)
  Sender: FDA-Public Use
  Company Number: JP-BAYER-2015-031890

PATIENT
  Age: 39 Year
  Sex: Female
  Weight: 54 kg

DRUGS (1)
  1. YAZ [Suspect]
     Active Substance: DROSPIRENONE\ETHINYL ESTRADIOL
     Indication: DYSMENORRHOEA
     Dosage: 1 DF, QD
     Route: 048
     Dates: start: 20140223, end: 20150223

REACTIONS (4)
  - Gastrointestinal oedema [Recovered/Resolved]
  - Abdominal pain lower [Recovered/Resolved]
  - Enterocolitis haemorrhagic [Recovered/Resolved]
  - Colitis ischaemic [Recovered/Resolved]

NARRATIVE: CASE EVENT DATE: 20150222
